FAERS Safety Report 9466038 (Version 1)
Quarter: 2013Q3

REPORT INFORMATION
  Report Type: Spontaneous
  Country: US (occurrence: US)
  Receive Date: 20130820
  Receipt Date: 20130820
  Transmission Date: 20140515
  Serious: Yes (Hospitalization, Other)
  Sender: FDA-Public Use
  Company Number: US-ASTRAZENECA-2013SE62852

PATIENT
  Age: 25023 Day
  Sex: Female

DRUGS (3)
  1. LISINOPRIL [Suspect]
     Route: 048
  2. PREDNISONE [Interacting]
     Route: 065
  3. NADOLOL [Interacting]
     Route: 065

REACTIONS (5)
  - Drug interaction [Unknown]
  - Loss of consciousness [Unknown]
  - Traumatic intracranial haemorrhage [Recovered/Resolved]
  - Brain injury [Recovered/Resolved]
  - Blood pressure decreased [Unknown]
